FAERS Safety Report 4730057-X (Version None)
Quarter: 2005Q3

REPORT INFORMATION
  Report Type: 
  Country: None (occurrence: None)
  Receive Date: 20050801
  Receipt Date: 20050721
  Transmission Date: 20060218
  Serious: Yes (Hospitalization)
  Sender: FDA-Public Use
  Company Number: JP-JNJFOC-20050506991

PATIENT
  Sex: Male
  Weight: 36 kg

DRUGS (13)
  1. REMICADE [Suspect]
     Indication: FISTULA
     Dosage: SECOND INFUSION
     Route: 042
  2. REMICADE [Suspect]
     Indication: CROHN'S DISEASE
     Route: 042
  3. PENTASA [Concomitant]
     Indication: CROHN'S DISEASE
  4. BIOFERMIN [Concomitant]
  5. BIOFERMIN [Concomitant]
  6. BIOFERMIN [Concomitant]
     Indication: CROHN'S DISEASE
  7. URSODIOL [Concomitant]
  8. POLARAMINE [Concomitant]
     Indication: PROPHYLAXIS
  9. CALONAL [Concomitant]
     Indication: PROPHYLAXIS
  10. LOPEMIN [Concomitant]
  11. FERRUM [Concomitant]
  12. TPN [Concomitant]
  13. ENTERAL NUTRITION [Concomitant]

REACTIONS (2)
  - DIARRHOEA [None]
  - PYREXIA [None]
